FAERS Safety Report 13427927 (Version 2)
Quarter: 2017Q2

REPORT INFORMATION
  Report Type: Spontaneous
  Country: FR (occurrence: FR)
  Receive Date: 20170411
  Receipt Date: 20170424
  Transmission Date: 20170830
  Serious: Yes (Hospitalization, Other)
  Sender: FDA-Public Use
  Company Number: FR-009507513-1704FRA004189

PATIENT
  Age: 72 Year
  Sex: Male

DRUGS (3)
  1. IMIPENEM AND CILASTATIN [Suspect]
     Active Substance: CILASTATIN SODIUM\IMIPENEM
     Dosage: 250 MG, TWICE DAILY
     Route: 042
     Dates: start: 20170206, end: 20170212
  2. ZYVOXID [Suspect]
     Active Substance: LINEZOLID
     Dosage: 600 MG, TWICE DAILY
     Route: 042
     Dates: start: 20170206, end: 20170212
  3. KEPPRA [Suspect]
     Active Substance: LEVETIRACETAM
     Indication: EPILEPSY
     Dosage: 1 G QD
     Route: 042
     Dates: start: 20170131, end: 20170212

REACTIONS (1)
  - Pancreatitis acute [Recovering/Resolving]

NARRATIVE: CASE EVENT DATE: 20170210
